FAERS Safety Report 7241501-0 (Version None)
Quarter: 2011Q1

REPORT INFORMATION
  Report Type: 
  Country: None (occurrence: None)
  Receive Date: 20110124
  Receipt Date: 20110114
  Transmission Date: 20110831
  Serious: Yes (Death, Other)
  Sender: FDA-Public Use
  Company Number: US-PFIZER INC-HQWYE169517MAR05

PATIENT
  Sex: Male

DRUGS (1)
  1. EFFEXOR XR [Suspect]
     Dosage: 75 MG, 2X/DAY
     Dates: start: 20030310

REACTIONS (9)
  - COMPLETED SUICIDE [None]
  - MIDDLE INSOMNIA [None]
  - HYPERHIDROSIS [None]
  - ASPHYXIA [None]
  - SUICIDAL IDEATION [None]
  - SELF ESTEEM DECREASED [None]
  - HEART RATE INCREASED [None]
  - THINKING ABNORMAL [None]
  - ANXIETY [None]
